FAERS Safety Report 15259903 (Version 3)
Quarter: 2018Q4

REPORT INFORMATION
  Report Type: Spontaneous
  Country: US (occurrence: US)
  Receive Date: 20180809
  Receipt Date: 20181016
  Transmission Date: 20190204
  Serious: No
  Sender: FDA-Public Use
  Company Number: US-SA-2018SA214646

PATIENT
  Age: 37 Year
  Sex: Male

DRUGS (9)
  1. METOPROLOL SUCCINATE. [Concomitant]
     Active Substance: METOPROLOL SUCCINATE
  2. CEFDINIR. [Concomitant]
     Active Substance: CEFDINIR
  3. DUPIXENT [Suspect]
     Active Substance: DUPILUMAB
     Indication: DERMATITIS ATOPIC
     Dosage: 300 MG, QOW
     Route: 058
     Dates: start: 201804
  4. COL RITE STOOL SOFTENER [Concomitant]
  5. DUPIXENT [Suspect]
     Active Substance: DUPILUMAB
     Dosage: 300 MG, QM
     Route: 058
  6. FAMOTIDINE. [Concomitant]
     Active Substance: FAMOTIDINE
  7. VYVANSE [Concomitant]
     Active Substance: LISDEXAMFETAMINE DIMESYLATE
  8. CLINDAMYCIN. [Concomitant]
     Active Substance: CLINDAMYCIN
  9. CYCLOSPORINE. [Concomitant]
     Active Substance: CYCLOSPORINE

REACTIONS (6)
  - Product use issue [Unknown]
  - Hypoaesthesia [Unknown]
  - Erythema [Unknown]
  - Peripheral swelling [Unknown]
  - Skin reaction [Unknown]
  - Paraesthesia [Unknown]
